FAERS Safety Report 5469182-7 (Version None)
Quarter: 2007Q3

REPORT INFORMATION
  Report Type: 
  Country: None (occurrence: None)
  Receive Date: 20070926
  Receipt Date: 20070926
  Transmission Date: 20080115
  Serious: Yes (Other)
  Sender: FDA-Public Use
  Company Number: None

PATIENT
  Age: 87 Year
  Sex: Male

DRUGS (11)
  1. AUGMENTIN '125' [Suspect]
     Dates: start: 20060319, end: 20060329
  2. FLOMAX [Concomitant]
  3. ZOCOR [Concomitant]
  4. COUMADIN [Concomitant]
  5. LASIX [Concomitant]
  6. VASOTEC [Concomitant]
  7. ISOSORBIDE DINITRATE [Concomitant]
  8. SYNTHROID [Concomitant]
  9. ASPIRIN [Concomitant]
  10. AMOXICILLIN [Concomitant]
  11. AZITHROMYCIN [Concomitant]

REACTIONS (12)
  - ABDOMINAL PAIN UPPER [None]
  - ANAEMIA [None]
  - BARRETT'S OESOPHAGUS [None]
  - BLOOD BILIRUBIN INCREASED [None]
  - GASTRITIS [None]
  - HIATUS HERNIA [None]
  - JAUNDICE [None]
  - LIVER DISORDER [None]
  - LIVER FUNCTION TEST ABNORMAL [None]
  - MELAENA [None]
  - RENAL FAILURE [None]
  - YELLOW SKIN [None]
